FAERS Safety Report 10945141 (Version 4)
Quarter: 2015Q2

REPORT INFORMATION
  Report Type: Spontaneous
  Country: US (occurrence: None)
  Receive Date: 20150319
  Receipt Date: 20150427
  Transmission Date: 20150821
  Serious: Yes (Other)
  Sender: FDA-Public Use
  Company Number: 2015SA033039

PATIENT
  Age: 63 Year
  Sex: Male
  Weight: 63.5 kg

DRUGS (1)
  1. ICY HOT [Suspect]
     Active Substance: MENTHOL\METHYL SALICYLATE
     Indication: BACK PAIN
     Route: 061
     Dates: start: 20150228

REACTIONS (6)
  - Dermatitis contact [None]
  - Pruritus [None]
  - Skin haemorrhage [None]
  - Blood blister [None]
  - Skin burning sensation [None]
  - Product quality issue [None]

NARRATIVE: CASE EVENT DATE: 20150301
